FAERS Safety Report 16993176 (Version 1)
Quarter: 2019Q4

REPORT INFORMATION
  Report Type: Spontaneous
  Country: FR (occurrence: FR)
  Receive Date: 20191105
  Receipt Date: 20191105
  Transmission Date: 20200122
  Serious: Yes (Hospitalization)
  Sender: FDA-Public Use
  Company Number: FR-ABBVIE-19K-056-2908201-00

PATIENT
  Age: 29 Year
  Sex: Female
  Weight: 45 kg

DRUGS (6)
  1. DOLIPRANE [Concomitant]
     Active Substance: ACETAMINOPHEN
     Indication: PRODUCT USED FOR UNKNOWN INDICATION
     Dosage: 4 TO 6 TIMES A DAY
     Route: 048
     Dates: start: 2008
  2. HUMIRA [Suspect]
     Active Substance: ADALIMUMAB
     Indication: PRODUCT USED FOR UNKNOWN INDICATION
     Dosage: STOPPED DURING 1ST PREGNANCY
     Route: 058
     Dates: start: 2010
  3. IXPRIM [Concomitant]
     Active Substance: ACETAMINOPHEN\TRAMADOL HYDROCHLORIDE
     Indication: PRODUCT USED FOR UNKNOWN INDICATION
     Route: 048
     Dates: start: 2010, end: 2017
  4. HUMIRA [Suspect]
     Active Substance: ADALIMUMAB
     Dosage: STOPPED DURING 2ND PREGNANCY
     Route: 058
  5. HUMIRA [Suspect]
     Active Substance: ADALIMUMAB
     Route: 058
  6. SALAZOPYRINE [Concomitant]
     Active Substance: SULFASALAZINE
     Indication: PRODUCT USED FOR UNKNOWN INDICATION
     Dates: start: 2008, end: 2011

REACTIONS (7)
  - Exposure during pregnancy [Unknown]
  - Blood pressure decreased [Unknown]
  - Weight increased [Unknown]
  - Shoulder dystocia [Unknown]
  - Obstructed labour [Unknown]
  - Live birth [Unknown]
  - Urinary tract infection [Unknown]
